FAERS Safety Report 11379726 (Version 1)
Quarter: 2015Q3

REPORT INFORMATION
  Report Type: Report from Study
  Country: US (occurrence: US)
  Receive Date: 20150814
  Receipt Date: 20150814
  Transmission Date: 20151125
  Serious: No
  Sender: FDA-Public Use
  Company Number: PHEH2015US012420

PATIENT
  Age: 17 Year
  Sex: Female
  Weight: 127.1 kg

DRUGS (1)
  1. SANDOSTATIN LAR DEPOT [Suspect]
     Active Substance: OCTREOTIDE ACETATE
     Indication: HYPOTHALAMO-PITUITARY DISORDER
     Dosage: 30 MG, QMO
     Route: 030

REACTIONS (6)
  - Syringe issue [Recovered/Resolved]
  - Product quality issue [Recovered/Resolved]
  - Off label use [Unknown]
  - Accidental exposure to product [Recovered/Resolved]
  - Needle issue [Recovered/Resolved]
  - Underdose [Recovered/Resolved]

NARRATIVE: CASE EVENT DATE: 20150625
